FAERS Safety Report 8240271-7 (Version None)
Quarter: 2012Q1

REPORT INFORMATION
  Report Type: 
  Country: None (occurrence: None)
  Receive Date: 20120328
  Receipt Date: 20120328
  Transmission Date: 20120608
  Serious: Yes (Hospitalization)
  Sender: FDA-Public Use
  Company Number: None

PATIENT
  Sex: Male
  Weight: 874.97 kg

DRUGS (1)
  1. PACLITAXEL [Suspect]
     Indication: BLADDER CANCER
     Dosage: 300MG
     Dates: start: 20120326, end: 20120326

REACTIONS (14)
  - CHEST DISCOMFORT [None]
  - HYPOPERFUSION [None]
  - RETCHING [None]
  - FLATULENCE [None]
  - SENSORY DISTURBANCE [None]
  - COLD SWEAT [None]
  - TROPONIN INCREASED [None]
  - ERYTHEMA [None]
  - HYPOTENSION [None]
  - HYPERHIDROSIS [None]
  - SENSATION OF HEAVINESS [None]
  - DYSPNOEA [None]
  - ERUCTATION [None]
  - ACUTE MYOCARDIAL INFARCTION [None]
